FAERS Safety Report 6822807-3 (Version None)
Quarter: 2010Q3

REPORT INFORMATION
  Report Type: 
  Country: None (occurrence: None)
  Receive Date: 20100706
  Receipt Date: 20100706
  Transmission Date: 20110219
  Serious: Yes (Hospitalization, Other)
  Sender: FDA-Public Use
  Company Number: None

PATIENT
  Age: 27 Year
  Sex: Female
  Weight: 90.7194 kg

DRUGS (1)
  1. MIRENA [Suspect]
     Indication: CONTRACEPTION
     Dosage: INTRA-UTERINE
     Route: 015
     Dates: start: 20081010, end: 20100703

REACTIONS (11)
  - ALOPECIA [None]
  - BACK PAIN [None]
  - BREAST PAIN [None]
  - CERVICITIS [None]
  - DEPRESSION [None]
  - DYSGEUSIA [None]
  - FUNGAL INFECTION [None]
  - LOSS OF LIBIDO [None]
  - UNEVALUABLE EVENT [None]
  - URINARY TRACT INFECTION [None]
  - WEIGHT INCREASED [None]
